FAERS Safety Report 23846986 (Version 1)
Quarter: 2024Q2

REPORT INFORMATION
  Report Type: Report from Study
  Country: CA (occurrence: CA)
  Receive Date: 20240513
  Receipt Date: 20240513
  Transmission Date: 20240715
  Serious: Yes (Other)
  Sender: FDA-Public Use
  Company Number: CA-UCBSA-2024015468

PATIENT
  Age: 63 Year
  Sex: Male

DRUGS (4)
  1. CERTOLIZUMAB PEGOL [Suspect]
     Active Substance: CERTOLIZUMAB PEGOL
     Indication: Psoriatic arthropathy
     Dosage: 200 MILLIGRAM, EV 2 WEEKS(QOW)
     Route: 058
     Dates: start: 20150316
  2. VALSARTAN [Concomitant]
     Active Substance: VALSARTAN
     Indication: Product used for unknown indication
     Dosage: 60 MILLIGRAM, ONCE DAILY (QD)
  3. METFORMIN [Concomitant]
     Active Substance: METFORMIN HYDROCHLORIDE
     Indication: Product used for unknown indication
     Dosage: 250 MILLIGRAM
  4. FLUVASTATIN [Concomitant]
     Active Substance: FLUVASTATIN SODIUM
     Indication: Product used for unknown indication
     Dosage: UNK

REACTIONS (4)
  - Infarction [Not Recovered/Not Resolved]
  - Stent placement [Not Recovered/Not Resolved]
  - Psoriatic arthropathy [Not Recovered/Not Resolved]
  - Off label use [Unknown]

NARRATIVE: CASE EVENT DATE: 20150316
